FAERS Safety Report 5699623-1 (Version None)
Quarter: 2008Q2

REPORT INFORMATION
  Report Type: 
  Country: None (occurrence: None)
  Receive Date: 20080410
  Receipt Date: 20080401
  Transmission Date: 20081010
  Serious: Yes (Hospitalization)
  Sender: FDA-Public Use
  Company Number: PHHY2008JP01078

PATIENT
  Sex: Female

DRUGS (3)
  1. MEDROL [Concomitant]
     Indication: RENAL TRANSPLANT
     Dosage: 2 MG/DAY
     Route: 048
  2. IMURAN [Concomitant]
     Indication: RENAL TRANSPLANT
     Dosage: 50 MG/DAY
     Route: 048
  3. NEORAL [Suspect]
     Indication: RENAL TRANSPLANT
     Dosage: 100 MG/DAY
     Route: 048

REACTIONS (2)
  - CAESAREAN SECTION [None]
  - DRUG EXPOSURE DURING PREGNANCY [None]
